FAERS Safety Report 5661205-5 (Version None)
Quarter: 2008Q1

REPORT INFORMATION
  Report Type: 
  Country: None (occurrence: None)
  Receive Date: 20080312
  Receipt Date: 20080306
  Transmission Date: 20080703
  Serious: Yes (Disabling)
  Sender: FDA-Public Use
  Company Number: JP-SP-2008-00737

PATIENT
  Age: 76 Year
  Sex: Male

DRUGS (3)
  1. IMMUCYST [Suspect]
     Indication: BLADDER CANCER
     Route: 043
     Dates: start: 20061026, end: 20070111
  2. IMMUCYST [Suspect]
     Route: 043
     Dates: start: 20061026, end: 20070111
  3. IMMUCYST [Suspect]
     Route: 043
     Dates: start: 20061026, end: 20070111

REACTIONS (9)
  - BLOOD CREATININE INCREASED [None]
  - CYSTITIS [None]
  - DYSURIA [None]
  - HEPATIC FUNCTION ABNORMAL [None]
  - NASOPHARYNGITIS [None]
  - POLLAKIURIA [None]
  - PYREXIA [None]
  - RENAL FAILURE ACUTE [None]
  - WHITE BLOOD CELLS URINE POSITIVE [None]
